FAERS Safety Report 11788581 (Version 1)
Quarter: 2015Q4

REPORT INFORMATION
  Report Type: Spontaneous
  Country: US (occurrence: None)
  Receive Date: 20151130
  Receipt Date: 20151130
  Transmission Date: 20160305
  Serious: Yes (Other)
  Sender: FDA-Public Use
  Company Number: None

PATIENT
  Age: 63 Year
  Sex: Male
  Weight: 90.72 kg

DRUGS (1)
  1. ATIVAN [Suspect]
     Active Substance: LORAZEPAM
     Indication: ANGER
     Dosage: 4 DAILY AS NEEDED FOUR TIMES DAILY
     Route: 048

REACTIONS (3)
  - Mental impairment [None]
  - Feeling abnormal [None]
  - Abnormal behaviour [None]
